FAERS Safety Report 20079780 (Version 3)
Quarter: 2025Q1

REPORT INFORMATION
  Report Type: Spontaneous
  Country: US (occurrence: US)
  Receive Date: 20211117
  Receipt Date: 20250312
  Transmission Date: 20250408
  Serious: Yes (Other)
  Sender: SANOFI AVENTIS
  Company Number: US-SA-SAC20211116000050

PATIENT
  Sex: Female

DRUGS (1)
  1. KEVZARA [Suspect]
     Active Substance: SARILUMAB
     Indication: Rheumatoid arthritis
     Dosage: 200 MG, QOW; 200 MG/ 1.14ML
     Route: 058
     Dates: start: 20190918

REACTIONS (5)
  - Rheumatoid arthritis [Unknown]
  - Pain [Recovering/Resolving]
  - Joint swelling [Unknown]
  - Peripheral swelling [Unknown]
  - Quality of life decreased [Recovered/Resolved]
